FAERS Safety Report 24429776 (Version 1)
Quarter: 2024Q4

REPORT INFORMATION
  Report Type: Spontaneous
  Country: DE (occurrence: DE)
  Receive Date: 20241012
  Receipt Date: 20241012
  Transmission Date: 20250114
  Serious: Yes (Death, Other)
  Sender: AMGEN
  Company Number: DE-AMGEN-DEUSP2024202020

PATIENT
  Age: 66 Year
  Sex: Male

DRUGS (1)
  1. SOTORASIB [Suspect]
     Active Substance: SOTORASIB
     Indication: Sarcomatoid carcinoma of the lung
     Dosage: UNK
     Route: 048

REACTIONS (3)
  - Sarcomatoid carcinoma of the lung [Fatal]
  - Metastases to central nervous system [Unknown]
  - Therapy non-responder [Unknown]
